FAERS Safety Report 7141416-2 (Version None)
Quarter: 2010Q4

REPORT INFORMATION
  Report Type: 
  Country: None (occurrence: None)
  Receive Date: 20101207
  Receipt Date: 20101201
  Transmission Date: 20110411
  Serious: Yes (Death, Other)
  Sender: FDA-Public Use
  Company Number: US-ELI_LILLY_AND_COMPANY-US201002002085

PATIENT
  Sex: Male
  Weight: 83.9 kg

DRUGS (4)
  1. BYETTA [Suspect]
     Indication: DIABETES MELLITUS
     Dosage: 10 UG, UNK
     Dates: start: 20051220, end: 20060910
  2. GLYBURIDE [Concomitant]
     Indication: DIABETES MELLITUS
     Dosage: 5 MG, UNK
     Dates: start: 20040901, end: 20060910
  3. LASIX [Concomitant]
     Indication: FLUID RETENTION
     Dates: start: 20030515, end: 20060910
  4. COREG [Concomitant]
     Indication: CORONARY ARTERY DISEASE
     Dosage: 25 MG, UNK
     Dates: start: 20041105, end: 20060910

REACTIONS (2)
  - PANCREATITIS [None]
  - SEPSIS [None]
